FAERS Safety Report 8839980 (Version 1)
Quarter: 2012Q4

REPORT INFORMATION
  Report Type: Spontaneous
  Country: US (occurrence: None)
  Receive Date: 20121015
  Receipt Date: 20121015
  Transmission Date: 20130627
  Serious: No
  Sender: FDA-Public Use
  Company Number: None

PATIENT
  Sex: Male

DRUGS (1)
  1. METHYLPREDNISOLONE ACETATE [Suspect]

REACTIONS (5)
  - Staphylococcal infection [None]
  - Soft tissue infection [None]
  - Extradural abscess [None]
  - Liquid product physical issue [None]
  - Product contamination microbial [None]
